FAERS Safety Report 21043270 (Version 1)
Quarter: 2022Q3

REPORT INFORMATION
  Report Type: Spontaneous
  Country: US (occurrence: None)
  Receive Date: 20220704
  Receipt Date: 20220704
  Transmission Date: 20221027
  Serious: No
  Sender: FDA-Public Use
  Company Number: None

PATIENT
  Sex: Female

DRUGS (1)
  1. KISQALI [Suspect]
     Active Substance: RIBOCICLIB
     Indication: Breast cancer
     Dosage: FREQUENCY : DAILY;?OTHER ROUTE : 21DAYS ON 7 OFF;?
     Route: 050
     Dates: start: 20220608

REACTIONS (2)
  - Drug hypersensitivity [None]
  - Therapy cessation [None]
